FAERS Safety Report 14071029 (Version 1)
Quarter: 2017Q4

REPORT INFORMATION
  Report Type: Spontaneous
  Country: US (occurrence: US)
  Receive Date: 20171010
  Receipt Date: 20171010
  Transmission Date: 20180321
  Serious: No
  Sender: FDA-Public Use
  Company Number: US-JNJFOC-20170920468

PATIENT
  Age: 75 Year
  Sex: Male

DRUGS (6)
  1. VITAMIN E [Concomitant]
     Active Substance: .ALPHA.-TOCOPHEROL
  2. INOSITOL [Concomitant]
     Active Substance: INOSITOL
  3. IMBRUVICA [Suspect]
     Active Substance: IBRUTINIB
     Indication: CHRONIC LYMPHOCYTIC LEUKAEMIA
     Route: 048
     Dates: start: 20150203
  4. SALMON OIL [Concomitant]
     Active Substance: FISH OIL
  5. VITAMINA B12 [Concomitant]
  6. VITAMIN D3 [Concomitant]
     Active Substance: CHOLECALCIFEROL

REACTIONS (1)
  - Abnormal loss of weight [Unknown]

NARRATIVE: CASE EVENT DATE: 201708
